FAERS Safety Report 19430699 (Version 2)
Quarter: 2024Q2

REPORT INFORMATION
  Report Type: Report from Study
  Country: US (occurrence: US)
  Receive Date: 20210618
  Receipt Date: 20240529
  Transmission Date: 20240715
  Serious: Yes (Hospitalization)
  Sender: FDA-Public Use
  Company Number: US-ACADIA PHARMACEUTICALS INC.-ACA-2021-PIM-001979

PATIENT
  Sex: Male

DRUGS (4)
  1. NUPLAZID [Suspect]
     Active Substance: PIMAVANSERIN TARTRATE
     Indication: Parkinson^s disease psychosis
     Dosage: 34 MILLIGRAM, QD
     Route: 065
  2. NUPLAZID [Suspect]
     Active Substance: PIMAVANSERIN TARTRATE
     Indication: Hallucination
  3. NUPLAZID [Suspect]
     Active Substance: PIMAVANSERIN TARTRATE
     Indication: Delusion
  4. DUPILUMAB [Concomitant]
     Active Substance: DUPILUMAB
     Indication: Dermatitis atopic
     Dosage: 1 DF (300MG/2ML)

REACTIONS (2)
  - Drug hypersensitivity [Unknown]
  - Adverse drug reaction [Unknown]
